FAERS Safety Report 23748071 (Version 1)
Quarter: 2024Q2

REPORT INFORMATION
  Report Type: Spontaneous
  Country: US (occurrence: US)
  Receive Date: 20240416
  Receipt Date: 20240416
  Transmission Date: 20240716
  Serious: No
  Sender: FDA-Public Use
  Company Number: US-AMX-008037

PATIENT
  Age: 72 Year
  Sex: Male
  Weight: 90.718 kg

DRUGS (3)
  1. RELYVRIO [Suspect]
     Active Substance: SODIUM PHENYLBUTYRATE\TAURURSODIOL
     Indication: Amyotrophic lateral sclerosis
     Dosage: 1 SACHET ONCE DAILY FOR 3WKS, THEN 1 SACHET TWICE DAILY.
     Route: 048
     Dates: start: 20240311
  2. GLYCOPYRROLATE [Concomitant]
     Active Substance: GLYCOPYRROLATE
     Indication: Salivary hypersecretion
     Route: 065
  3. RILUZOLE [Concomitant]
     Active Substance: RILUZOLE
     Indication: Amyotrophic lateral sclerosis
     Route: 065

REACTIONS (3)
  - Asthenia [Unknown]
  - Malaise [Unknown]
  - Product supply issue [Unknown]
